FAERS Safety Report 7092432-0 (Version None)
Quarter: 2010Q4

REPORT INFORMATION
  Report Type: 
  Country: None (occurrence: None)
  Receive Date: 20101110
  Receipt Date: 20100928
  Transmission Date: 20110411
  Serious: No
  Sender: FDA-Public Use
  Company Number: US-BAYER-201029777NA

PATIENT
  Sex: Female

DRUGS (1)
  1. ULTRAVIST 300 [Suspect]
     Indication: PRODUCT USED FOR UNKNOWN INDICATION
     Dosage: AS USED: 100 ML
     Route: 042

REACTIONS (1)
  - NAUSEA [None]
